FAERS Safety Report 5736252-5 (Version None)
Quarter: 2008Q2

REPORT INFORMATION
  Report Type: 
  Country: None (occurrence: None)
  Receive Date: 20080513
  Receipt Date: 20080507
  Transmission Date: 20081010
  Serious: Yes (Death, Hospitalization)
  Sender: FDA-Public Use
  Company Number: US-MERCK-0805USA01372

PATIENT
  Age: 62 Year
  Sex: Male

DRUGS (2)
  1. CEFTRIAXONE SODIUM [Concomitant]
     Route: 042
  2. CASPOFUNGIN ACETATE [Suspect]
     Route: 041

REACTIONS (2)
  - CANDIDIASIS [None]
  - PYREXIA [None]
